FAERS Safety Report 5674267-6 (Version None)
Quarter: 2008Q2

REPORT INFORMATION
  Report Type: 
  Country: None (occurrence: None)
  Receive Date: 20080225
  Receipt Date: 20080114
  Transmission Date: 20081010
  Serious: No
  Sender: FDA-Public Use
  Company Number: US-1164969

PATIENT
  Sex: Female

DRUGS (3)
  1. NEVANAC [Suspect]
     Indication: PROPHYLAXIS
     Dosage: (OPHTHALMIC)
     Route: 047
     Dates: start: 20080101
  2. ECONOPRED PLUS [Suspect]
     Dosage: (OPHTHALMIC)
     Route: 047
     Dates: start: 20080101
  3. VIGAMOX [Suspect]
     Dosage: (OPHTHALMIC)
     Route: 047

REACTIONS (3)
  - NAUSEA [None]
  - OEDEMA PERIPHERAL [None]
  - WEIGHT INCREASED [None]
